FAERS Safety Report 16879275 (Version 7)
Quarter: 2021Q1

REPORT INFORMATION
  Report Type: Report from Study
  Country: BR (occurrence: BR)
  Receive Date: 20191003
  Receipt Date: 20210224
  Transmission Date: 20210419
  Serious: Yes (Life-Threatening, Hospitalization, Other)
  Sender: FDA-Public Use
  Company Number: PHHY2019BR092527

PATIENT
  Age: 43 Year
  Sex: Male
  Weight: 79 kg

DRUGS (7)
  1. COSENTYX [Suspect]
     Active Substance: SECUKINUMAB
     Indication: PSORIASIS
     Dosage: UNK
     Route: 065
     Dates: start: 201908
  2. COSENTYX [Suspect]
     Active Substance: SECUKINUMAB
     Indication: PSORIATIC ARTHROPATHY
     Dosage: 300 MG, QMO
     Route: 065
     Dates: start: 20190314
  3. COSENTYX [Suspect]
     Active Substance: SECUKINUMAB
     Dosage: UNK
     Route: 065
  4. PARACETAMOL [Concomitant]
     Active Substance: ACETAMINOPHEN
     Indication: PAIN
     Dosage: 1 DF, PRN (STARTED ABOUT 15 YEARS AGO)
     Route: 048
  5. COSENTYX [Suspect]
     Active Substance: SECUKINUMAB
     Dosage: 2 DF (2 VIALS OF 150MG), QMO
     Route: 058
     Dates: start: 201903, end: 201908
  6. COSENTYX [Suspect]
     Active Substance: SECUKINUMAB
     Dosage: 2 DF (2 VIALS OF 150MG), QMO
     Route: 058
     Dates: start: 201911
  7. COSENTYX [Suspect]
     Active Substance: SECUKINUMAB
     Dosage: UNK
     Route: 065
     Dates: start: 20191217

REACTIONS (31)
  - Neck pain [Recovered/Resolved]
  - Haemorrhage [Recovered/Resolved]
  - Sensory disturbance [Unknown]
  - Head discomfort [Unknown]
  - Vomiting [Recovered/Resolved]
  - Headache [Recovered/Resolved]
  - Psoriasis [Not Recovered/Not Resolved]
  - Venous haemorrhage [Unknown]
  - Syncope [Recovered/Resolved]
  - Venous occlusion [Unknown]
  - Musculoskeletal discomfort [Recovered/Resolved]
  - Dizziness [Recovered/Resolved]
  - Therapeutic product effect incomplete [Unknown]
  - Cerebrovascular accident [Unknown]
  - Neck pain [Recovered/Resolved]
  - Fatigue [Not Recovered/Not Resolved]
  - Post procedural discomfort [Not Recovered/Not Resolved]
  - Intracranial aneurysm [Recovered/Resolved]
  - Intracranial pressure increased [Recovered/Resolved]
  - Weight gain poor [Unknown]
  - Headache [Recovered/Resolved]
  - Aneurysm ruptured [Recovered/Resolved]
  - Skin injury [Unknown]
  - Movement disorder [Recovering/Resolving]
  - Psoriatic arthropathy [Unknown]
  - Near death experience [Unknown]
  - Cerebral haemorrhage [Unknown]
  - Decreased immune responsiveness [Unknown]
  - Malaise [Recovered/Resolved]
  - Asthenia [Unknown]
  - Inappropriate schedule of product administration [Unknown]

NARRATIVE: CASE EVENT DATE: 2019
